FAERS Safety Report 9848267 (Version 1)
Quarter: 2013Q4

REPORT INFORMATION
  Report Type: Spontaneous
  Country: US (occurrence: None)
  Receive Date: 20131226
  Receipt Date: 20131226
  Transmission Date: 20140711
  Serious: Yes (Other)
  Sender: FDA-Public Use
  Company Number: PHEH2013US014634

PATIENT
  Age: 72 Year
  Sex: Female
  Weight: 55.8 kg

DRUGS (1)
  1. ARCAPTA (INDACATEROL) UNKNOWN [Suspect]
     Indication: CHRONIC OBSTRUCTIVE PULMONARY DISEASE
     Route: 055
     Dates: start: 20130121, end: 201306

REACTIONS (2)
  - Lactose intolerance [None]
  - Diarrhoea [None]
